FAERS Safety Report 13196657 (Version 2)
Quarter: 2017Q1

REPORT INFORMATION
  Report Type: Spontaneous
  Country: IT (occurrence: IT)
  Receive Date: 20170208
  Receipt Date: 20170214
  Transmission Date: 20170428
  Serious: Yes (Hospitalization)
  Sender: FDA-Public Use
  Company Number: IT-PFIZER INC-2017042008

PATIENT
  Age: 40 Year
  Sex: Female

DRUGS (2)
  1. PLASIL /00041901/ [Suspect]
     Active Substance: METOCLOPRAMIDE
     Indication: ABDOMINAL PAIN UPPER
     Dosage: UNK
  2. PANTORC [Suspect]
     Active Substance: PANTOPRAZOLE SODIUM
     Indication: ABDOMINAL PAIN UPPER
     Dosage: UNK

REACTIONS (3)
  - Hypotension [Recovering/Resolving]
  - Lip oedema [Recovering/Resolving]
  - Pruritus [Recovering/Resolving]

NARRATIVE: CASE EVENT DATE: 20161223
